FAERS Safety Report 8245133-7 (Version None)
Quarter: 2012Q1

REPORT INFORMATION
  Report Type: 
  Country: None (occurrence: None)
  Receive Date: 20120329
  Receipt Date: 20120315
  Transmission Date: 20120608
  Serious: Yes (Hospitalization)
  Sender: FDA-Public Use
  Company Number: AR-INCYTE CORPORATION-2012IN000388

PATIENT
  Sex: Female
  Weight: 58 kg

DRUGS (2)
  1. INC424 [Suspect]
     Dosage: 10 MG, BID
     Route: 048
     Dates: start: 20120313
  2. INC424 [Suspect]
     Indication: MYELOFIBROSIS
     Dosage: 20 MG, BID
     Route: 048
     Dates: start: 20111229, end: 20120306

REACTIONS (1)
  - GASTROENTERITIS [None]
